FAERS Safety Report 17475536 (Version 4)
Quarter: 2021Q2

REPORT INFORMATION
  Report Type: Spontaneous
  Country: US (occurrence: US)
  Receive Date: 20200228
  Receipt Date: 20210409
  Transmission Date: 20210716
  Serious: Yes (Other)
  Sender: FDA-Public Use
  Company Number: US-PFIZER INC-2020089375

PATIENT
  Age: 62 Year
  Sex: Female
  Weight: 69.39 kg

DRUGS (1)
  1. XELJANZ XR [Suspect]
     Active Substance: TOFACITINIB CITRATE
     Indication: RHEUMATOID ARTHRITIS
     Dosage: 11 MG, DAILY
     Route: 048
     Dates: start: 202002

REACTIONS (4)
  - Cough [Unknown]
  - Blood cholesterol increased [Unknown]
  - Weight increased [Unknown]
  - Ear infection [Unknown]
